FAERS Safety Report 7300402-X (Version None)
Quarter: 2011Q1

REPORT INFORMATION
  Report Type: 
  Country: None (occurrence: None)
  Receive Date: 20110217
  Receipt Date: 20110204
  Transmission Date: 20110831
  Serious: Yes (Disabling, Other)
  Sender: FDA-Public Use
  Company Number: PHEH2009US00892

PATIENT
  Sex: Male

DRUGS (21)
  1. PEN-VEE K [Concomitant]
     Dosage: 500 MG, UNK
  2. CASODEX [Concomitant]
     Dosage: 50 MG, QD
     Route: 048
  3. AZITHROMYCIN [Concomitant]
     Dosage: UNK
  4. LUPRON [Concomitant]
     Dosage: UNK
     Dates: start: 20080117
  5. PERCOCET [Concomitant]
     Dosage: 5.325 MG, Q4H
     Route: 048
  6. ADVAIR [Concomitant]
     Dosage: UNK
  7. ADVAIR DISKUS 100/50 [Concomitant]
     Dosage: 100-50MCG DISK BID
  8. LISINOPRIL [Concomitant]
     Dosage: 10 MG, UNK
  9. PREDNISONE [Concomitant]
     Dosage: 20 MG, UNK
     Route: 048
  10. PROAIR (FLUTICASONE PROPIONATE) [Concomitant]
     Dosage: 90MCG
  11. ZOMETA [Suspect]
     Indication: NEOPLASM MALIGNANT
     Dosage: UNK
     Dates: start: 20080201, end: 20080801
  12. SPIRIVA [Concomitant]
     Dosage: 18 MCG AS DIRECTED
  13. ALBUTEROL [Concomitant]
     Dosage: 90MCG
  14. CHLORHEXIDINE DENTAL ^ACO^ [Concomitant]
     Dosage: UNK
     Route: 049
  15. INDERIDE-40/25 [Concomitant]
     Dosage: UNK
  16. DUONEB [Concomitant]
     Dosage: UNK
  17. AZITHROMYCIN [Concomitant]
     Dosage: 250 MG, UNK
     Route: 048
  18. PREDNISONE [Concomitant]
     Dosage: 4 MG, UNK
  19. LEVAQUIN [Concomitant]
     Dosage: 500 MG, UNK
     Dates: start: 20080825
  20. ZESTRIL [Concomitant]
     Dosage: UNK
  21. PROPRANOLOL HCL W/HYDROCHLOROTHIAZIDE [Concomitant]
     Dosage: 80/25 TAB
     Route: 048

REACTIONS (40)
  - JOINT INJURY [None]
  - LIGAMENT RUPTURE [None]
  - SCAR [None]
  - TOOTHACHE [None]
  - BACK PAIN [None]
  - BONE LESION [None]
  - HIATUS HERNIA [None]
  - CHRONIC OBSTRUCTIVE PULMONARY DISEASE [None]
  - SPINAL OSTEOARTHRITIS [None]
  - TENDON RUPTURE [None]
  - ANHEDONIA [None]
  - SNORING [None]
  - ROTATOR CUFF SYNDROME [None]
  - MUSCLE ATROPHY [None]
  - ARTHROPATHY [None]
  - STRESS FRACTURE [None]
  - PHYSICAL DISABILITY [None]
  - SYNOVIAL CYST [None]
  - PLEURAL CALCIFICATION [None]
  - MENTAL DISORDER [None]
  - DYSPNOEA [None]
  - PULMONARY FIBROSIS [None]
  - DYSPHAGIA [None]
  - POLLAKIURIA [None]
  - PRODUCTIVE COUGH [None]
  - JOINT RANGE OF MOTION DECREASED [None]
  - OSTEONECROSIS OF JAW [None]
  - PAIN [None]
  - ANXIETY [None]
  - PAIN IN JAW [None]
  - QUALITY OF LIFE DECREASED [None]
  - LIVER FUNCTION TEST ABNORMAL [None]
  - EMOTIONAL DISTRESS [None]
  - DISCOMFORT [None]
  - INJURY [None]
  - NEOPLASM MALIGNANT [None]
  - REFLUX OESOPHAGITIS [None]
  - DYSPEPSIA [None]
  - FALL [None]
  - MUSCULOSKELETAL PAIN [None]
